FAERS Safety Report 4359772-7 (Version None)
Quarter: 2004Q2

REPORT INFORMATION
  Report Type: 
  Country: None (occurrence: None)
  Receive Date: 20040518
  Receipt Date: 20040331
  Transmission Date: 20050107
  Serious: Yes (Hospitalization)
  Sender: FDA-Public Use
  Company Number: US-GLAXOSMITHKLINE-A0505414A

PATIENT
  Sex: Female

DRUGS (8)
  1. CEFTIN [Suspect]
     Indication: SKIN INFECTION
     Dosage: 500MG TWICE PER DAY
     Route: 048
  2. ESTROGEN [Concomitant]
  3. SYNTHROID [Concomitant]
  4. ATACAND [Concomitant]
  5. MACRODANTIN [Concomitant]
  6. DYAZIDE [Concomitant]
  7. DIGITEK [Concomitant]
  8. BEXTRA [Concomitant]

REACTIONS (2)
  - DYSPNOEA [None]
  - OEDEMA [None]
